FAERS Safety Report 15264613 (Version 1)
Quarter: 2018Q3

REPORT INFORMATION
  Report Type: Spontaneous
  Country: US (occurrence: US)
  Receive Date: 20180723
  Receipt Date: 20180723
  Transmission Date: 20181010
  Serious: Yes (Hospitalization)
  Sender: FDA-Public Use
  Company Number: None

PATIENT
  Sex: Female

DRUGS (17)
  1. BUTAL/APAP [Concomitant]
  2. ZOFRAN [Concomitant]
     Active Substance: ONDANSETRON HYDROCHLORIDE
  3. CYCLOBENZAPR [Concomitant]
     Active Substance: CYCLOBENZAPRINE
  4. TEMOZOLOMIDE. [Suspect]
     Active Substance: TEMOZOLOMIDE
     Indication: NEOPLASM MALIGNANT
     Dosage: ?          OTHER FREQUENCY:5 DAYS;?
     Route: 048
     Dates: start: 20170720
  5. TRIAZOLAM. [Concomitant]
     Active Substance: TRIAZOLAM
  6. PROCHLORPER [Concomitant]
  7. BACTRIM [Concomitant]
     Active Substance: SULFAMETHOXAZOLE\TRIMETHOPRIM
  8. PROTONIX [Concomitant]
     Active Substance: PANTOPRAZOLE SODIUM
  9. TEMOZOLOMIDE. [Suspect]
     Active Substance: TEMOZOLOMIDE
     Indication: NEOPLASM MALIGNANT
     Dosage: ?          OTHER FREQUENCY:5 DAYS;?
     Route: 048
     Dates: start: 20170720
  10. FIORICET [Concomitant]
     Active Substance: ACETAMINOPHEN\BUTALBITAL\CAFFEINE
  11. SERTRALINE [Concomitant]
     Active Substance: SERTRALINE HYDROCHLORIDE
  12. LISINOPRIL AND HYDROCHLOROTHIAZIDE [Concomitant]
     Active Substance: HYDROCHLOROTHIAZIDE\LISINOPRIL
  13. SIMVASTATIN. [Concomitant]
     Active Substance: SIMVASTATIN
  14. NORVASC [Concomitant]
     Active Substance: AMLODIPINE BESYLATE
  15. DEXAMETHASON [Concomitant]
     Active Substance: DEXAMETHASONE
  16. KEPPRA [Concomitant]
     Active Substance: LEVETIRACETAM
  17. LORAZAPAM [Concomitant]
     Active Substance: LORAZEPAM

REACTIONS (1)
  - Hip fracture [None]
